FAERS Safety Report 6024901-6 (Version None)
Quarter: 2008Q4

REPORT INFORMATION
  Report Type: 
  Country: None (occurrence: None)
  Receive Date: 20081222
  Receipt Date: 20080918
  Transmission Date: 20090506
  Serious: No
  Sender: FDA-Public Use
  Company Number: ALL1-2008-02682

PATIENT
  Age: 9 Year
  Sex: Male
  Weight: 28.1 kg

DRUGS (2)
  1. VYVANSE [Suspect]
     Indication: ATTENTION DEFICIT/HYPERACTIVITY DISORDER
     Dosage: 20 MG, 1X/DAY:QD, ORAL
     Route: 048
     Dates: start: 20080915
  2. UNKNOWN NASAL SPRAY NASAL [Concomitant]

REACTIONS (1)
  - IRRITABILITY [None]
